FAERS Safety Report 5976451-0 (Version None)
Quarter: 2008Q4

REPORT INFORMATION
  Report Type: 
  Country: None (occurrence: None)
  Receive Date: 20081126
  Receipt Date: 20081114
  Transmission Date: 20090506
  Serious: Yes (Other)
  Sender: FDA-Public Use
  Company Number: US-1167678

PATIENT
  Age: 83 Year
  Sex: Male
  Weight: 88.4514 kg

DRUGS (4)
  1. ATROPINE SULFATE [Suspect]
     Indication: DROOLING
     Dosage: (2 GTT QID SUBLINGUAL)
     Route: 060
     Dates: start: 20081007, end: 20081010
  2. CARBIDOPA + LEVODOPA [Concomitant]
  3. PRAMIPEXOLE DIHYDROCHLORIDE [Concomitant]
  4. METOPROLOL [Concomitant]

REACTIONS (1)
  - HALLUCINATION [None]
